FAERS Safety Report 9462411 (Version 1)
Quarter: 2013Q3

REPORT INFORMATION
  Report Type: Spontaneous
  Country: IT (occurrence: IT)
  Receive Date: 20130816
  Receipt Date: 20130816
  Transmission Date: 20140515
  Serious: Yes (Other)
  Sender: FDA-Public Use
  Company Number: PHHY2013IT086073

PATIENT
  Sex: Female

DRUGS (3)
  1. AMLODIPINE [Suspect]
     Dosage: 1 DF, QD
     Route: 048
     Dates: start: 20120601, end: 20130531
  2. LASIX [Suspect]
     Dosage: 1 DF, QD
     Route: 048
     Dates: start: 20120601, end: 20130531
  3. CANRENONE [Suspect]
     Dosage: 1 DF, QD
     Route: 048
     Dates: start: 20120601, end: 20130531

REACTIONS (3)
  - Dehydration [Recovering/Resolving]
  - Hypotension [Recovering/Resolving]
  - Presyncope [Recovering/Resolving]
